FAERS Safety Report 6703450-3 (Version None)
Quarter: 2010Q2

REPORT INFORMATION
  Report Type: 
  Country: None (occurrence: None)
  Receive Date: 20100428
  Receipt Date: 20100414
  Transmission Date: 20101027
  Serious: Yes (Other)
  Sender: FDA-Public Use
  Company Number: 010200

PATIENT
  Sex: 0

DRUGS (2)
  1. XUSAL (XUSAL 5) [Suspect]
     Dosage: (TOOK 20 TABLETS = 100 MG ORAL)
     Route: 048
  2. PARACETAMOL (PARACETAMOL 500) [Suspect]
     Dosage: (TOOK 10 TABLETS = 5000MG ORAL)
     Route: 048
     Dates: start: 20100414

REACTIONS (2)
  - FATIGUE [None]
  - SUICIDE ATTEMPT [None]
